FAERS Safety Report 5821023-1 (Version None)
Quarter: 2008Q3

REPORT INFORMATION
  Report Type: 
  Country: None (occurrence: None)
  Receive Date: 20080721
  Receipt Date: 20080710
  Transmission Date: 20090109
  Serious: Yes (Life-Threatening, Other)
  Sender: FDA-Public Use
  Company Number: 08H-163-0314574-00

PATIENT
  Age: 57 Year
  Sex: Male

DRUGS (3)
  1. VANCOMYCIN [Suspect]
     Indication: CELLULITIS
     Dosage: 1 GM, IV INFUSION
     Route: 042
  2. OXYCODONE-ACETAMINOPHEN (OXYCOCET) [Concomitant]
  3. ENOXAPARIN SODIUM [Concomitant]

REACTIONS (8)
  - ACUTE PULMONARY OEDEMA [None]
  - DRUG HYPERSENSITIVITY [None]
  - DYSPNOEA [None]
  - HYPOTENSION [None]
  - HYPOXIA [None]
  - MENTAL STATUS CHANGES [None]
  - RALES [None]
  - RESPIRATORY ALKALOSIS [None]
